FAERS Safety Report 6688990-8 (Version None)
Quarter: 2010Q2

REPORT INFORMATION
  Report Type: 
  Country: None (occurrence: None)
  Receive Date: 20100409
  Receipt Date: 20100331
  Transmission Date: 20101027
  Serious: Yes (Hospitalization, Other)
  Sender: FDA-Public Use
  Company Number: 2010SP018965

PATIENT
  Age: 67 Year
  Sex: Female

DRUGS (5)
  1. DEXAMETHASONE [Suspect]
     Indication: PROPHYLAXIS OF NAUSEA AND VOMITING
     Dosage: 8 MG; QD
  2. FLUOROURACIL [Suspect]
     Indication: ANAL CANCER
     Dosage: 1000 MG/M2; QD; IV
     Route: 042
  3. MITOMYCIN [Suspect]
     Indication: ANAL CANCER
     Dosage: IV
     Route: 042
  4. ACYCLOVIR [Concomitant]
  5. COTRIM [Concomitant]

REACTIONS (6)
  - CANDIDIASIS [None]
  - DYSPNOEA [None]
  - ORAL CANDIDIASIS [None]
  - RESPIRATORY MONILIASIS [None]
  - SKIN EXFOLIATION [None]
  - STRIDOR [None]
